FAERS Safety Report 9503070 (Version 1)
Quarter: 2013Q3

REPORT INFORMATION
  Report Type: Spontaneous
  Country: CO (occurrence: CO)
  Receive Date: 20130906
  Receipt Date: 20130906
  Transmission Date: 20140515
  Serious: Yes (Other)
  Sender: FDA-Public Use
  Company Number: CO-PFIZER INC-2013256005

PATIENT
  Age: 77 Year
  Sex: Female

DRUGS (6)
  1. LYRICA [Suspect]
     Indication: SPINAL PAIN
     Dosage: 75 MG, 1X/DAY
     Route: 048
     Dates: start: 20130726
  2. LYRICA [Suspect]
     Indication: INSOMNIA
  3. LOSARTAN [Concomitant]
     Indication: HYPERTENSION
     Dosage: 50 MG, 3X/DAY
     Route: 048
     Dates: start: 1996
  4. VERAPAMIL [Concomitant]
     Indication: HYPERTENSION
     Dosage: 80 MG, 2X/DAY
     Route: 048
     Dates: start: 1996
  5. OMEPRAZOL [Concomitant]
     Indication: GASTRITIS
     Dosage: UNK, 1X/DAY
     Route: 048
     Dates: start: 2012
  6. TRAMADOL [Concomitant]
     Indication: PAIN
     Dosage: 100 MG, AS NEEDED
     Route: 048

REACTIONS (2)
  - Off label use [Unknown]
  - Bone cancer [Unknown]
